FAERS Safety Report 9848760 (Version 1)
Quarter: 2014Q1

REPORT INFORMATION
  Report Type: Spontaneous
  Country: JP (occurrence: JP)
  Receive Date: 20140128
  Receipt Date: 20140128
  Transmission Date: 20141002
  Serious: Yes (Hospitalization, Other)
  Sender: FDA-Public Use
  Company Number: JP-BAYER-2014-010458

PATIENT
  Sex: Female

DRUGS (1)
  1. YAZ [Suspect]
     Indication: DYSMENORRHOEA
     Dosage: UNK
     Route: 048
     Dates: start: 201211, end: 201307

REACTIONS (4)
  - Muscular weakness [None]
  - Hyperventilation [None]
  - Pain in extremity [None]
  - Abasia [Not Recovered/Not Resolved]
